FAERS Safety Report 4987570-X (Version None)
Quarter: 2006Q2

REPORT INFORMATION
  Report Type: 
  Country: None (occurrence: None)
  Receive Date: 20060427
  Receipt Date: 20060427
  Transmission Date: 20061013
  Serious: No
  Sender: FDA-Public Use
  Company Number: None

PATIENT
  Sex: Female
  Weight: 45.3597 kg

DRUGS (4)
  1. NEFAZODONE HCL [Suspect]
     Indication: AGORAPHOBIA
     Dosage: 625 MG AT BEDTIME
  2. NEFAZODONE HCL [Suspect]
     Indication: ANXIETY
     Dosage: 625 MG AT BEDTIME
  3. NEFAZODONE HCL [Suspect]
     Indication: DEPRESSION
     Dosage: 625 MG AT BEDTIME
  4. NEFAZODONE HCL [Suspect]
     Indication: PANIC DISORDER
     Dosage: 625 MG AT BEDTIME

REACTIONS (9)
  - ANXIETY [None]
  - ASTHENIA [None]
  - DEPRESSION [None]
  - DISTURBANCE IN ATTENTION [None]
  - FATIGUE [None]
  - INSOMNIA [None]
  - PANIC ATTACK [None]
  - PHARMACEUTICAL PRODUCT COMPLAINT [None]
  - THERAPEUTIC RESPONSE UNEXPECTED WITH DRUG SUBSTITUTION [None]
